FAERS Safety Report 7778130-6 (Version None)
Quarter: 2011Q3

REPORT INFORMATION
  Report Type: 
  Country: None (occurrence: None)
  Receive Date: 20110926
  Receipt Date: 20110923
  Transmission Date: 20111222
  Serious: No
  Sender: FDA-Public Use
  Company Number: US-PFIZER INC-2011227397

PATIENT
  Sex: Female
  Weight: 49.887 kg

DRUGS (2)
  1. ADVIL [Suspect]
     Indication: HEADACHE
     Dosage: 200 MG, AS NEEDED
     Route: 048
  2. LOESTRIN 24 FE [Concomitant]
     Indication: CONTRACEPTION
     Dosage: 1MG/20MCG DAILY
     Dates: start: 20110101

REACTIONS (2)
  - HYPOAESTHESIA ORAL [None]
  - PHARYNGEAL HYPOAESTHESIA [None]
